FAERS Safety Report 4476793-4 (Version None)
Quarter: 2004Q4

REPORT INFORMATION
  Report Type: 
  Country: None (occurrence: None)
  Receive Date: 20041013
  Receipt Date: 20041004
  Transmission Date: 20050328
  Serious: Yes (Death)
  Sender: FDA-Public Use
  Company Number: 2004-10-0433

PATIENT
  Age: 65 Year
  Sex: Male

DRUGS (2)
  1. PROVENTIL [Suspect]
     Indication: CHRONIC OBSTRUCTIVE AIRWAYS DISEASE
     Dosage: 2 PUFFS BID ORAL AER INH
     Route: 055
     Dates: start: 20020716
  2. ALBUTEROL [Suspect]
     Indication: CHRONIC OBSTRUCTIVE AIRWAYS DISEASE

REACTIONS (4)
  - CARDIAC ARREST [None]
  - DRUG INEFFECTIVE [None]
  - RESPIRATORY ARREST [None]
  - RESPIRATORY DISTRESS [None]
